FAERS Safety Report 5919882-7 (Version None)
Quarter: 2008Q3

REPORT INFORMATION
  Report Type: 
  Country: None (occurrence: None)
  Receive Date: 20080909
  Receipt Date: 20070622
  Transmission Date: 20090109
  Serious: Yes (Hospitalization)
  Sender: FDA-Public Use
  Company Number: 163-20785-07061322 (0)

PATIENT
  Age: 67 Year
  Sex: Male
  Weight: 91 kg

DRUGS (15)
  1. THALOMID [Suspect]
     Indication: MULTIPLE MYELOMA
     Dosage: 200 MG
     Dates: start: 20060320, end: 20060323
  2. BORTEZOMIB (BORTEZOMIB) [Suspect]
     Indication: MULTIPLE MYELOMA
     Dosage: 2 MG,QD DAYS 1, 4, 8, ORAL
     Route: 048
     Dates: start: 20060320, end: 20060327
  3. DEXAMETHASONE TAB [Suspect]
     Indication: MULTIPLE MYELOMA
     Dosage: 40 MG, QD X4 DAYS, ORAL
     Route: 048
     Dates: start: 20060320, end: 20060323
  4. CISPLATIN [Suspect]
     Indication: MULTIPLE MYELOMA
     Dosage: 20 MG
     Dates: start: 20060320, end: 20060323
  5. ADRIAMYCIN PFS [Suspect]
     Indication: MULTIPLE MYELOMA
     Dosage: 20 MG
     Dates: start: 20060320, end: 20060323
  6. CYCLOPHOSPHAMIDE [Suspect]
     Indication: MULTIPLE MYELOMA
     Dosage: 800 MG
     Dates: start: 20060320, end: 20060323
  7. ETOPOSIDE [Suspect]
     Indication: MULTIPLE MYELOMA
     Dosage: 80 MG
     Dates: start: 20060320, end: 20060323
  8. TOPROL-XL [Concomitant]
  9. ASPIRIN [Concomitant]
  10. ACYCLOVIR [Concomitant]
  11. DIFLUCAN [Concomitant]
  12. LEVAQUIN [Concomitant]
  13. GCSF (FILGRASTIM) [Concomitant]
  14. PLATELET TRANSFUSION (PLATELETS, CONCENTRATE) [Concomitant]
  15. HYDROCORTISONE [Concomitant]

REACTIONS (1)
  - MEDICAL OBSERVATION [None]
